FAERS Safety Report 7157058-9 (Version None)
Quarter: 2010Q4

REPORT INFORMATION
  Report Type: 
  Country: None (occurrence: None)
  Receive Date: 20101214
  Receipt Date: 20100323
  Transmission Date: 20110411
  Serious: No
  Sender: FDA-Public Use
  Company Number: US-ASTRAZENECA-2009UW03921

PATIENT
  Age: 86 Year
  Sex: Female
  Weight: 64.9 kg

DRUGS (6)
  1. CRESTOR [Suspect]
     Indication: BLOOD CHOLESTEROL INCREASED
     Route: 048
     Dates: start: 20090101, end: 20090201
  2. CRESTOR [Suspect]
     Route: 048
     Dates: end: 20090401
  3. CRESTOR [Suspect]
     Route: 048
     Dates: end: 20090501
  4. CRESTOR [Suspect]
     Route: 048
     Dates: end: 20100301
  5. HYZAAR [Concomitant]
  6. TYLENOL (CAPLET) [Concomitant]

REACTIONS (3)
  - ANXIETY [None]
  - BACK PAIN [None]
  - PAIN IN EXTREMITY [None]
